FAERS Safety Report 12629371 (Version 1)
Quarter: 2016Q3

REPORT INFORMATION
  Report Type: Spontaneous
  Country: US (occurrence: None)
  Receive Date: 20160805
  Receipt Date: 20160805
  Transmission Date: 20161109
  Serious: No
  Sender: FDA-Public Use
  Company Number: None

PATIENT

DRUGS (1)
  1. NIFEDIPINE XL [Suspect]
     Active Substance: NIFEDIPINE

REACTIONS (3)
  - Drug prescribing error [None]
  - Wrong technique in product usage process [None]
  - Drug effect variable [None]
